FAERS Safety Report 5637362-3 (Version None)
Quarter: 2008Q1

REPORT INFORMATION
  Report Type: 
  Country: None (occurrence: None)
  Receive Date: 20080225
  Receipt Date: 20080214
  Transmission Date: 20080703
  Serious: Yes (Hospitalization)
  Sender: FDA-Public Use
  Company Number: US-PFIZER INC-2007104434

PATIENT
  Sex: Male
  Weight: 68.181 kg

DRUGS (5)
  1. TIKOSYN [Suspect]
     Indication: ATRIAL FIBRILLATION
     Route: 048
  2. LASIX [Concomitant]
     Dosage: DAILY DOSE:80MG
  3. POTASSIUM CHLORIDE [Concomitant]
     Dosage: DAILY DOSE:40MEQ
  4. COREG [Concomitant]
  5. ADVAIR DISKUS 100/50 [Concomitant]

REACTIONS (4)
  - HYPOAESTHESIA [None]
  - MUSCULOSKELETAL PAIN [None]
  - PARAESTHESIA [None]
  - UNEVALUABLE EVENT [None]
